FAERS Safety Report 8499229-5 (Version None)
Quarter: 2012Q3

REPORT INFORMATION
  Report Type: 
  Country: None (occurrence: None)
  Receive Date: 20120710
  Receipt Date: 20120628
  Transmission Date: 20120928
  Serious: Yes (Other)
  Sender: FDA-Public Use
  Company Number: PHEH2012US013225

PATIENT
  Sex: Female

DRUGS (5)
  1. GLEEVEC [Suspect]
     Indication: GASTRIC CANCER
     Dosage: 400 MG, DAILY
     Route: 048
  2. CRESTOR [Concomitant]
  3. LISINOPRIL [Concomitant]
  4. GLIPIZIDE [Concomitant]
  5. METFORMIN HCL [Concomitant]

REACTIONS (1)
  - DIABETES MELLITUS [None]
